FAERS Safety Report 16257855 (Version 1)
Quarter: 2019Q2

REPORT INFORMATION
  Report Type: Other
  Country: US (occurrence: US)
  Receive Date: 20190430
  Receipt Date: 20190430
  Transmission Date: 20190711
  Serious: No
  Sender: FDA-Public Use
  Company Number: US-AKRON, INC.-2066454

PATIENT
  Age: 71 Year
  Sex: Female

DRUGS (1)
  1. SULFAMETHOXAZOLE + TRIMETHOPRIM ORAL SUSPENSION USP [Suspect]
     Active Substance: SULFAMETHOXAZOLE\TRIMETHOPRIM

REACTIONS (1)
  - Hypersensitivity [Unknown]
